FAERS Safety Report 21724564 (Version 1)
Quarter: 2022Q4

REPORT INFORMATION
  Report Type: Report from Study
  Country: AT (occurrence: AT)
  Receive Date: 20221213
  Receipt Date: 20221213
  Transmission Date: 20230113
  Serious: Yes (Other)
  Sender: FDA-Public Use
  Company Number: AT-SUN PHARMACEUTICAL INDUSTRIES LTD-2022R1-368047

PATIENT

DRUGS (1)
  1. AMINOLEVULINIC ACID [Suspect]
     Active Substance: AMINOLEVULINIC ACID
     Indication: Glioblastoma
     Dosage: UNK
     Route: 065

REACTIONS (2)
  - Procedural haemorrhage [Unknown]
  - Neurological decompensation [Recovering/Resolving]
